FAERS Safety Report 6362267-2 (Version None)
Quarter: 2009Q3

REPORT INFORMATION
  Report Type: 
  Country: None (occurrence: None)
  Receive Date: 20090918
  Receipt Date: 20090701
  Transmission Date: 20100115
  Serious: No
  Sender: FDA-Public Use
  Company Number: US-ABBOTT-09P-163-0583164-00

PATIENT
  Sex: Female
  Weight: 78.088 kg

DRUGS (8)
  1. HUMIRA [Suspect]
     Indication: CROHN'S DISEASE
     Dates: start: 20081201, end: 20090301
  2. HUMIRA [Suspect]
     Dates: start: 20090301
  3. PURINETHOL [Concomitant]
     Indication: CROHN'S DISEASE
  4. LEXAPRO [Concomitant]
     Indication: DEPRESSION
  5. FERREX [Concomitant]
     Indication: MINERAL SUPPLEMENTATION
  6. AMITRIPTYLINE [Concomitant]
     Indication: DEPRESSION
  7. EVOXAC [Concomitant]
     Indication: DRY MOUTH
  8. HYDROCHLOROTHIAZIDE [Concomitant]
     Indication: HYPERTENSION

REACTIONS (3)
  - DRUG INEFFECTIVE [None]
  - HAEMATOCHEZIA [None]
  - INJECTION SITE PAIN [None]
